FAERS Safety Report 15984357 (Version 2)
Quarter: 2019Q1

REPORT INFORMATION
  Report Type: Report from Study
  Country: DE (occurrence: DE)
  Receive Date: 20190220
  Receipt Date: 20190313
  Transmission Date: 20190418
  Serious: Yes (Congenital Anomaly, Other)
  Sender: FDA-Public Use
  Company Number: DE-ACCORD-107852

PATIENT
  Sex: Female
  Weight: 2 kg

DRUGS (8)
  1. FUROSEMIDE. [Suspect]
     Active Substance: FUROSEMIDE
     Indication: FOETAL EXPOSURE DURING PREGNANCY
     Dosage: UNK,?UNKNOWN?FREQ.?(5+4-19+5?GW)
     Route: 064
  2. RAMIPRIL. [Suspect]
     Active Substance: RAMIPRIL
     Indication: FOETAL EXPOSURE DURING PREGNANCY
     Dosage: 2.5 MG, UNK?UNKNOWN?FREQ.?(0-8?GW)
     Route: 064
  3. PREDNISOLONE. [Suspect]
     Active Substance: PREDNISOLONE
     Indication: FOETAL EXPOSURE DURING PREGNANCY
     Dosage: 5-100MG
     Route: 064
  4. COLECALCIFEROL [Suspect]
     Active Substance: CHOLECALCIFEROL
     Indication: FOETAL EXPOSURE DURING PREGNANCY
     Route: 064
  5. OMEPRAZOLE. [Suspect]
     Active Substance: OMEPRAZOLE
     Indication: FOETAL EXPOSURE DURING PREGNANCY
     Route: 064
  6. TORASEMIDE [Suspect]
     Active Substance: TORSEMIDE
     Indication: FOETAL EXPOSURE DURING PREGNANCY
     Dosage: UNK,?UNKNOWN?FREQ.?(0-5?GW)
     Route: 064
  7. TACROLIMUS. [Suspect]
     Active Substance: TACROLIMUS
     Indication: FOETAL EXPOSURE DURING PREGNANCY
     Dosage: UNK?UNK,?UNKNOWN?FREQ.?(0-19+6-?GW)
     Route: 064
  8. FLUVASTATIN [Suspect]
     Active Substance: FLUVASTATIN SODIUM
     Indication: FOETAL EXPOSURE DURING PREGNANCY
     Route: 064

REACTIONS (13)
  - Limb reduction defect [Unknown]
  - Congenital oral malformation [Unknown]
  - Neck deformity [Unknown]
  - Aplasia [Unknown]
  - Dysmorphism [Unknown]
  - Retrognathia [Unknown]
  - Limb hypoplasia congenital [Unknown]
  - Atrial septal defect [Unknown]
  - Developmental hip dysplasia [Unknown]
  - Patent ductus arteriosus [Unknown]
  - Cleft palate [Unknown]
  - Talipes [Unknown]
  - Foetal exposure during pregnancy [Unknown]
